FAERS Safety Report 8380392-1 (Version None)
Quarter: 2012Q2

REPORT INFORMATION
  Report Type: 
  Country: None (occurrence: None)
  Receive Date: 20120515
  Receipt Date: 20120504
  Transmission Date: 20120825
  Serious: Yes (Death, Hospitalization)
  Sender: FDA-Public Use
  Company Number: AEUSA201200028

PATIENT
  Age: 5 Year
  Sex: Male

DRUGS (4)
  1. FEIBA [Suspect]
     Indication: HAEMARTHROSIS
     Dosage: 75 IU/KG;QD;IV
     Route: 042
     Dates: start: 20070101, end: 20110701
  2. FEIBA [Suspect]
     Indication: HAEMOPHILIA A WITH ANTI FACTOR VIII
     Dosage: 75 IU/KG;QD;IV
     Route: 042
     Dates: start: 20070101, end: 20110701
  3. ALPHANATE [Suspect]
     Indication: HAEMOPHILIA A WITH ANTI FACTOR VIII
     Dosage: 200 IU/KG;QD;IV
     Route: 042
     Dates: start: 20070901, end: 20110701
  4. ALPHANATE [Suspect]
     Indication: IMMUNE TOLERANCE INDUCTION
     Dosage: 200 IU/KG;QD;IV
     Route: 042
     Dates: start: 20070901, end: 20110701

REACTIONS (13)
  - PULMONARY EMBOLISM [None]
  - RIGHT VENTRICULAR FAILURE [None]
  - PULMONARY THROMBOSIS [None]
  - STAPHYLOCOCCUS TEST POSITIVE [None]
  - HYPOXIA [None]
  - PNEUMONIA [None]
  - VOMITING [None]
  - PULMONARY HAEMORRHAGE [None]
  - PYREXIA [None]
  - LUNG INFILTRATION [None]
  - CARDIO-RESPIRATORY ARREST [None]
  - COUGH [None]
  - PNEUMOTHORAX [None]
